FAERS Safety Report 4269906-0 (Version None)
Quarter: 2004Q1

REPORT INFORMATION
  Report Type: 
  Country: None (occurrence: None)
  Receive Date: 20040112
  Receipt Date: 20040112
  Transmission Date: 20041129
  Serious: Yes (Hospitalization)
  Sender: FDA-Public Use
  Company Number: None

PATIENT
  Age: 73 Year
  Sex: Male

DRUGS (9)
  1. ETODOLAC [Suspect]
     Indication: PAIN
     Dates: start: 20030723
  2. BACLOFEN [Concomitant]
  3. ALBUTEROL [Concomitant]
  4. ASPIRIN [Concomitant]
  5. DONEPEZIL HCL [Concomitant]
  6. ISOSORBIDE [Concomitant]
  7. NITROGLYCERIN [Concomitant]
  8. CITALOPRAM [Concomitant]
  9. GLYBURIDE [Concomitant]

REACTIONS (2)
  - ANOREXIA [None]
  - HYPOGLYCAEMIA [None]
